FAERS Safety Report 9115773 (Version 1)
Quarter: 2013Q1

REPORT INFORMATION
  Report Type: Spontaneous
  Country: US (occurrence: None)
  Receive Date: 20130221
  Receipt Date: 20130221
  Transmission Date: 20140127
  Serious: Yes (Other)
  Sender: FDA-Public Use
  Company Number: None

PATIENT
  Age: 67 Year
  Sex: Female
  Weight: 75 kg

DRUGS (6)
  1. TRAMADOL 50 MG AMNEAL PHARMACEUTICALS [Suspect]
     Indication: PAIN
     Dosage: TRAMADOL (AMNEAL) 50 MG TABS  2 TABS BID  ORAL -047
     Route: 048
     Dates: start: 201008, end: 20130209
  2. OMEPRAZOLE [Concomitant]
  3. ARMOUR THYROID [Concomitant]
  4. ENALAPRIL [Concomitant]
  5. HYDROCHLOROTHIAZIDE HCTZ [Concomitant]
  6. PREDNISONE [Concomitant]

REACTIONS (2)
  - Nausea [None]
  - Vomiting [None]
